FAERS Safety Report 23582777 (Version 1)
Quarter: 2024Q1

REPORT INFORMATION
  Report Type: Spontaneous
  Country: GB (occurrence: GB)
  Receive Date: 20240301
  Receipt Date: 20240301
  Transmission Date: 20240410
  Serious: Yes (Other)
  Sender: FDA-Public Use
  Company Number: None

PATIENT
  Age: 75 Year
  Sex: Female
  Weight: 60 kg

DRUGS (21)
  1. CLONAZEPAM [Suspect]
     Active Substance: CLONAZEPAM
     Indication: Product used for unknown indication
     Dosage: AT NIGHT
     Route: 065
     Dates: start: 20240205
  2. BISOPROLOL [Concomitant]
     Active Substance: BISOPROLOL\BISOPROLOL FUMARATE
     Dates: start: 20220920
  3. POLYETHYLENE GLYCOL 3350\POTASSIUM CHLORIDE\SODIUM BICARBONATE\SODIUM [Concomitant]
     Active Substance: POLYETHYLENE GLYCOL 3350\POTASSIUM CHLORIDE\SODIUM BICARBONATE\SODIUM CHLORIDE
     Indication: Constipation
     Dosage: TIME INTERVAL: AS NECESSARY: ADULTS: 1-2 SACHETS DAILY PRN FOR CONSTIPATION
     Dates: start: 20240117, end: 20240214
  4. LANSOPRAZOLE [Concomitant]
     Active Substance: LANSOPRAZOLE
     Dates: start: 20220920
  5. OXYCODONE HYDROCHLORIDE [Concomitant]
     Active Substance: OXYCODONE HYDROCHLORIDE
     Dates: start: 20230906
  6. DULOXETINE [Concomitant]
     Active Substance: DULOXETINE
     Dosage: USE AS DIRECTED
     Dates: start: 20240212
  7. ISOPROPYL MYRISTATE\MINERAL OIL [Concomitant]
     Active Substance: ISOPROPYL MYRISTATE\MINERAL OIL
     Dosage: TIME INTERVAL: AS NECESSARY: APPLY TWO TO FOUR TIMES A DAY AND/OR WHEN REQUIRED
     Dates: start: 20231026
  8. GLYCERIN [Concomitant]
     Active Substance: GLYCERIN
     Dosage: TIME INTERVAL: AS NECESSARY: INSERT ONE DAILY AS NEEDED
     Dates: start: 20231026
  9. CANDESARTAN [Concomitant]
     Active Substance: CANDESARTAN
     Dosage: IN THE MORNING
     Dates: start: 20220920, end: 20240112
  10. METOCLOPRAMIDE [Concomitant]
     Active Substance: METOCLOPRAMIDE
     Indication: Nausea
     Dosage: TIME INTERVAL: AS NECESSARY: TAKE ONE 3 TIMES/DAY AS NEEDED FOR NAUSEA
     Dates: start: 20231026
  11. NITROGLYCERIN [Concomitant]
     Active Substance: NITROGLYCERIN
     Dosage: TIME INTERVAL: AS NECESSARY: ONE PUFF AS NEEDED
     Dates: start: 20220920
  12. NEFOPAM [Concomitant]
     Active Substance: NEFOPAM
     Dosage: TIME INTERVAL: 0.33333333 DAYS
     Dates: start: 20240207
  13. CARBOCYSTEINE [Concomitant]
     Active Substance: CARBOCYSTEINE
     Dosage: TIME INTERVAL: 0.33333333 DAYS
     Dates: start: 20231016
  14. DEXAMETHASONE [Concomitant]
     Active Substance: DEXAMETHASONE
     Dates: start: 20240110, end: 20240116
  15. OXYCODONE HYDROCHLORIDE [Concomitant]
     Active Substance: OXYCODONE HYDROCHLORIDE
     Dosage: TIME INTERVAL: AS NECESSARY: TAKE 15MG/15ML EVERY 4 HOURS AS REQUIRED
     Dates: start: 20230906
  16. ROSUVASTATIN [Concomitant]
     Active Substance: ROSUVASTATIN
     Dates: start: 20220920
  17. ACETAMINOPHEN [Concomitant]
     Active Substance: ACETAMINOPHEN
     Dosage: 2 QDS AS PER ONCOLOGY
     Dates: start: 20230616
  18. APIXABAN [Concomitant]
     Active Substance: APIXABAN
     Dates: start: 20231016
  19. LEVOTHYROXINE [Concomitant]
     Active Substance: LEVOTHYROXINE\LEVOTHYROXINE SODIUM
     Dates: start: 20220920
  20. PREGABALIN [Concomitant]
     Active Substance: PREGABALIN
     Dosage: IN THE MORNING AND AFTERNOON
     Dates: start: 20230906
  21. FOLIC ACID [Concomitant]
     Active Substance: FOLIC ACID
     Dates: start: 20231026

REACTIONS (3)
  - Somnolence [Recovered/Resolved]
  - Dizziness [Recovering/Resolving]
  - Disorientation [Recovered/Resolved]

NARRATIVE: CASE EVENT DATE: 20240207
